FAERS Safety Report 10708644 (Version 1)
Quarter: 2015Q1

REPORT INFORMATION
  Report Type: Spontaneous
  Country: US (occurrence: US)
  Receive Date: 20150113
  Receipt Date: 20150113
  Transmission Date: 20150721
  Serious: Yes (Death)
  Sender: FDA-Public Use
  Company Number: US-GLAXOSMITHKLINE-US2015GSK002027

PATIENT
  Age: 83 Year
  Sex: Female

DRUGS (2)
  1. ARSENIC [Suspect]
     Active Substance: ARSENIC
     Dosage: UNK
     Route: 048
  2. CARVEDILOL. [Suspect]
     Active Substance: CARVEDILOL
     Dosage: UNK
     Route: 048

REACTIONS (2)
  - Victim of homicide [Fatal]
  - Intentional product misuse [Fatal]
